FAERS Safety Report 11340938 (Version 1)
Quarter: 2015Q3

REPORT INFORMATION
  Report Type: Spontaneous
  Country: US (occurrence: US)
  Receive Date: 20150805
  Receipt Date: 20150805
  Transmission Date: 20151125
  Serious: No
  Sender: FDA-Public Use
  Company Number: US-JNJFOC-20150203953

PATIENT

DRUGS (2)
  1. NIZORAL [Suspect]
     Active Substance: KETOCONAZOLE
     Indication: PRODUCT USED FOR UNKNOWN INDICATION
     Dosage: STRENGTH: 200 MG.??ADMINISTERED 30 MINUTES AFTER BREAKFAST FROM DAY 3 TO DAY 21
     Route: 048
  2. ALISPORIVIR [Interacting]
     Active Substance: ALISPORIVIR
     Indication: PRODUCT USED FOR UNKNOWN INDICATION
     Dosage: STRENGTH: 200 MG.????ON DAY 1
     Route: 065

REACTIONS (1)
  - Drug interaction [Unknown]
